FAERS Safety Report 5800798-1 (Version None)
Quarter: 2008Q3

REPORT INFORMATION
  Report Type: 
  Country: None (occurrence: None)
  Receive Date: 20080703
  Receipt Date: 20080627
  Transmission Date: 20090109
  Serious: Yes (Hospitalization)
  Sender: FDA-Public Use
  Company Number: DE-MERCK-0806DEU00014

PATIENT
  Age: 10 Month
  Sex: Male
  Weight: 8 kg

DRUGS (13)
  1. INFECTODIARRSTOP [Concomitant]
     Indication: DIARRHOEA
     Route: 065
  2. OLYNTH [Concomitant]
     Indication: EAR INFECTION
     Route: 065
  3. CEFUROXIME [Concomitant]
     Indication: EAR INFECTION
     Route: 065
  4. TIORFAN [Concomitant]
     Route: 065
  5. PODOMEXEF [Concomitant]
     Indication: EAR INFECTION
     Route: 065
  6. ATROVENT [Concomitant]
     Indication: BRONCHITIS CHRONIC
     Route: 065
  7. SYNAGIS [Concomitant]
     Route: 065
  8. SINGULAIR [Suspect]
     Indication: BRONCHITIS CHRONIC
     Route: 048
     Dates: start: 20080317, end: 20080415
  9. SINGULAIR [Suspect]
     Indication: COUGH
     Route: 048
     Dates: start: 20080317, end: 20080415
  10. ANTIMICROBIAL (UNSPECIFIED) [Concomitant]
     Route: 065
  11. ALBUTEROL [Concomitant]
     Indication: BRONCHITIS CHRONIC
     Dates: start: 20080301
  12. BUDIAIR [Concomitant]
     Indication: BRONCHITIS CHRONIC
     Dates: start: 20080301
  13. AMOXICILLIN [Concomitant]
     Indication: BRONCHITIS CHRONIC
     Route: 048
     Dates: start: 20071201

REACTIONS (3)
  - CONCUSSION [None]
  - RETINAL HAEMORRHAGE [None]
  - SUBDURAL HAEMORRHAGE [None]
